FAERS Safety Report 5861401-8 (Version None)
Quarter: 2008Q3

REPORT INFORMATION
  Report Type: 
  Country: None (occurrence: None)
  Receive Date: 20080827
  Receipt Date: 20080505
  Transmission Date: 20090109
  Serious: No
  Sender: FDA-Public Use
  Company Number: US-ABBOTT-08P-163-0450282-00

PATIENT
  Sex: Male
  Weight: 90.8 kg

DRUGS (7)
  1. COATED PDS [Suspect]
     Indication: BLOOD CHOLESTEROL INCREASED
     Dates: start: 20080101, end: 20080301
  2. COATED PDS [Suspect]
     Dates: start: 20080301
  3. PROPRANOLOL [Concomitant]
     Indication: ATRIAL FIBRILLATION
     Route: 048
  4. ACETYLSALICYLIC ACID SRT [Concomitant]
     Indication: PREMEDICATION
     Route: 048
  5. LINUM USITATISSIMUM SEED OIL [Concomitant]
     Indication: DRUG USE FOR UNKNOWN INDICATION
     Route: 048
  6. VITAMIN TAB [Concomitant]
     Indication: VITAMIN SUPPLEMENTATION
     Route: 048
  7. GINKO [Concomitant]
     Indication: DRUG USE FOR UNKNOWN INDICATION

REACTIONS (6)
  - ATRIAL FIBRILLATION [None]
  - CHEST DISCOMFORT [None]
  - CHILLS [None]
  - DYSPNOEA [None]
  - PRURITUS [None]
  - STRESS [None]
